FAERS Safety Report 9699916 (Version 2)
Quarter: 2014Q1

REPORT INFORMATION
  Report Type: Spontaneous
  Country: US (occurrence: US)
  Receive Date: 20131121
  Receipt Date: 20140107
  Transmission Date: 20141002
  Serious: No
  Sender: FDA-Public Use
  Company Number: US-009507513-1311USA004224

PATIENT
  Age: 53 Year
  Sex: Female
  Weight: 69.84 kg

DRUGS (6)
  1. VICTRELIS [Suspect]
     Indication: HEPATITIS C
     Dosage: 800 MG, TID (Q8H)
     Route: 048
     Dates: start: 20131108, end: 20131110
  2. PEGINTRON [Suspect]
  3. REBETOL [Suspect]
  4. LAMICTAL [Concomitant]
  5. CLONAZEPAM [Concomitant]
  6. SEROQUEL XR [Concomitant]
     Dosage: 200 MG, QD

REACTIONS (9)
  - Restless legs syndrome [Recovering/Resolving]
  - Hepatic enzyme abnormal [Recovering/Resolving]
  - Chest discomfort [Recovering/Resolving]
  - Chest pain [Recovering/Resolving]
  - Dysphagia [Recovering/Resolving]
  - Agitation [Recovering/Resolving]
  - Chills [Recovering/Resolving]
  - Nausea [Recovering/Resolving]
  - Dyspnoea [Recovered/Resolved]
